FAERS Safety Report 9743189 (Version 3)
Quarter: 2015Q3

REPORT INFORMATION
  Report Type: Spontaneous
  Country: US (occurrence: US)
  Receive Date: 20131210
  Receipt Date: 20150804
  Transmission Date: 20151125
  Serious: Yes (Hospitalization)
  Sender: FDA-Public Use
  Company Number: US-GILEAD-2009-0024884

PATIENT
  Age: 77 Year
  Sex: Female

DRUGS (13)
  1. METOLAZONE. [Concomitant]
     Active Substance: METOLAZONE
  2. VYTORIN [Concomitant]
     Active Substance: EZETIMIBE\SIMVASTATIN
  3. EXFORGE [Concomitant]
     Active Substance: AMLODIPINE BESYLATE\VALSARTAN
  4. SYNTHROID [Concomitant]
     Active Substance: LEVOTHYROXINE SODIUM
  5. COMBIVENT [Concomitant]
     Active Substance: ALBUTEROL SULFATE\IPRATROPIUM BROMIDE
  6. LASIX [Concomitant]
     Active Substance: FUROSEMIDE
  7. WARFARIN [Concomitant]
     Active Substance: WARFARIN
  8. LETAIRIS [Suspect]
     Active Substance: AMBRISENTAN
     Indication: PULMONARY ARTERIAL HYPERTENSION
     Route: 048
     Dates: start: 20090421
  9. COREG [Concomitant]
     Active Substance: CARVEDILOL
  10. FLURAZEPAM [Concomitant]
     Active Substance: FLURAZEPAM\FLURAZEPAM HYDROCHLORIDE
  11. PARACETAMOL/HYDROCODONE BITARTRATE [Concomitant]
  12. REVATIO [Concomitant]
     Active Substance: SILDENAFIL CITRATE
  13. MULTAQ [Concomitant]
     Active Substance: DRONEDARONE

REACTIONS (2)
  - Ascites [Recovered/Resolved]
  - Oedema [Recovered/Resolved]
